FAERS Safety Report 10512917 (Version 1)
Quarter: 2014Q4

REPORT INFORMATION
  Report Type: Spontaneous
  Country: US (occurrence: US)
  Receive Date: 20141013
  Receipt Date: 20141013
  Transmission Date: 20150528
  Serious: Yes (Other)
  Sender: FDA-Public Use
  Company Number: US-TEVA-505001USA

PATIENT
  Sex: Female

DRUGS (1)
  1. LEVALBUTEROL [Suspect]
     Active Substance: LEVALBUTEROL

REACTIONS (8)
  - Condition aggravated [Unknown]
  - Dry throat [Unknown]
  - Dyspnoea [Unknown]
  - Tremor [Unknown]
  - Blood pressure increased [Unknown]
  - Movement disorder [Unknown]
  - Heart rate increased [Unknown]
  - Throat tightness [Unknown]
